FAERS Safety Report 6434995-1 (Version None)
Quarter: 2009Q4

REPORT INFORMATION
  Report Type: 
  Country: None (occurrence: None)
  Receive Date: 20091110
  Receipt Date: 20091028
  Transmission Date: 20100525
  Serious: Yes (Hospitalization, Other)
  Sender: FDA-Public Use
  Company Number: PHHY2009CH46668

PATIENT
  Age: 81 Year
  Sex: Female

DRUGS (9)
  1. EXFORGE [Suspect]
     Indication: HYPERTENSION
     Dosage: 160/UNK/DAY
     Dates: start: 20071128, end: 20090827
  2. EXFORGE [Suspect]
     Dosage: 160/UNK/ DAY
     Dates: start: 20090908, end: 20090911
  3. CALCIMAGON-D3 [Concomitant]
     Dosage: 2 DOSAGE FORM/DAY
  4. PANTOPRAZOLE SODIUM [Concomitant]
     Dosage: 20 MG PER DAY
     Dates: start: 20080101
  5. MOTILIUM [Concomitant]
     Dosage: 30 MG PER DAY
  6. TORSEMIDE [Concomitant]
     Indication: HYPERTENSION
     Dosage: 5 MG PER DAY
     Dates: start: 20071206, end: 20090914
  7. TRYPTIZOL [Concomitant]
     Dosage: 10 MG PER DAY
     Dates: start: 20080101
  8. SERESTA [Concomitant]
     Dosage: 15 MG PER DAY
     Dates: start: 20080101
  9. NOCTAMID [Concomitant]
     Dosage: 1 MG PER DAY

REACTIONS (13)
  - ANAEMIA MACROCYTIC [None]
  - ANGINA PECTORIS [None]
  - BLOOD BILIRUBIN INCREASED [None]
  - BLOOD LACTATE DEHYDROGENASE INCREASED [None]
  - DYSPNOEA [None]
  - FATIGUE [None]
  - GENERAL PHYSICAL HEALTH DETERIORATION [None]
  - HAEMOLYTIC ANAEMIA [None]
  - HYPOTENSION [None]
  - RETICULOCYTE COUNT INCREASED [None]
  - TACHYCARDIA [None]
  - VITAMIN B12 DEFICIENCY [None]
  - WHITE BLOOD CELL COUNT INCREASED [None]
